FAERS Safety Report 8343294-2 (Version None)
Quarter: 2012Q2

REPORT INFORMATION
  Report Type: 
  Country: None (occurrence: None)
  Receive Date: 20120508
  Receipt Date: 20120430
  Transmission Date: 20120825
  Serious: Yes (Other)
  Sender: FDA-Public Use
  Company Number: US-JNJFOC-20120503912

PATIENT
  Age: 70 Year
  Sex: Male
  Weight: 100 kg

DRUGS (5)
  1. LISINOPRIL [Concomitant]
     Indication: HYPERTENSION
     Route: 065
  2. NICOTROL [Suspect]
     Indication: SMOKING CESSATION THERAPY
     Route: 065
  3. ZYPREXA [Concomitant]
     Route: 065
  4. CHANTIX [Suspect]
     Indication: SMOKING CESSATION THERAPY
     Route: 048
  5. PROAIR HFA [Concomitant]
     Indication: CHRONIC OBSTRUCTIVE PULMONARY DISEASE
     Route: 065

REACTIONS (6)
  - HOMICIDAL IDEATION [None]
  - MALAISE [None]
  - SUICIDAL IDEATION [None]
  - AGGRESSION [None]
  - DRUG INEFFECTIVE [None]
  - SELF-INJURIOUS IDEATION [None]
